FAERS Safety Report 12862010 (Version 1)
Quarter: 2016Q4

REPORT INFORMATION
  Report Type: Spontaneous
  Country: US (occurrence: US)
  Receive Date: 20161018
  Receipt Date: 20161018
  Transmission Date: 20170207
  Serious: Yes (Hospitalization)
  Sender: FDA-Public Use
  Company Number: None

PATIENT
  Age: 52 Year
  Sex: Male
  Weight: 103.5 kg

DRUGS (1)
  1. DALTEPARIN [Suspect]
     Active Substance: DALTEPARIN
     Indication: ANTIPHOSPHOLIPID SYNDROME
     Dosage: 12500 UNITS BID SQ
     Route: 058
     Dates: start: 20160607, end: 20160812

REACTIONS (12)
  - Joint swelling [None]
  - Oedema peripheral [None]
  - Haemoglobin decreased [None]
  - Hyperaesthesia [None]
  - Tenderness [None]
  - Pain in extremity [None]
  - Ecchymosis [None]
  - Haematoma [None]
  - Platelet count decreased [None]
  - Renal impairment [None]
  - Haematocrit decreased [None]
  - Pulmonary alveolar haemorrhage [None]

NARRATIVE: CASE EVENT DATE: 20160819
